FAERS Safety Report 5267829-1 (Version None)
Quarter: 2007Q1

REPORT INFORMATION
  Report Type: 
  Country: None (occurrence: None)
  Receive Date: 20070316
  Receipt Date: 20070307
  Transmission Date: 20070707
  Serious: Yes (Other)
  Sender: FDA-Public Use
  Company Number: NL-PFIZER INC-2007018659

PATIENT
  Sex: Male
  Weight: 90 kg

DRUGS (5)
  1. LIPITOR [Suspect]
     Indication: HYPERCHOLESTEROLAEMIA
     Route: 048
  2. OMEPRAZOLE [Concomitant]
     Route: 048
  3. METFORMIN HCL [Concomitant]
     Route: 048
  4. ACETYLSALICYLIC ACID SRT [Concomitant]
     Route: 048
  5. INSULATARD [Concomitant]
     Route: 058

REACTIONS (3)
  - JOINT RANGE OF MOTION DECREASED [None]
  - MYALGIA [None]
  - TONGUE DISORDER [None]
